FAERS Safety Report 4680851-9 (Version None)
Quarter: 2005Q2

REPORT INFORMATION
  Report Type: 
  Country: None (occurrence: None)
  Receive Date: 20050601
  Receipt Date: 20050601
  Transmission Date: 20051028
  Serious: Yes (Hospitalization)
  Sender: FDA-Public Use
  Company Number: None

PATIENT
  Age: 33 Year
  Sex: Male
  Weight: 88.8 kg

DRUGS (2)
  1. ULTRAVIST 300 [Suspect]
     Indication: COMPUTERISED TOMOGRAM
     Dosage: 100 CC
  2. ULTRAVIST 300 [Suspect]

REACTIONS (11)
  - CARDIO-RESPIRATORY ARREST [None]
  - CHEST PAIN [None]
  - CONVULSION [None]
  - EMOTIONAL DISORDER [None]
  - ERYTHEMA [None]
  - EYELID OEDEMA [None]
  - LOSS OF CONSCIOUSNESS [None]
  - POST PROCEDURAL COMPLICATION [None]
  - POSTURING [None]
  - STRIDOR [None]
  - SWELLING FACE [None]
